FAERS Safety Report 8473662-X (Version None)
Quarter: 2012Q2

REPORT INFORMATION
  Report Type: 
  Country: None (occurrence: None)
  Receive Date: 20120628
  Receipt Date: 20110906
  Transmission Date: 20120825
  Serious: Yes (Life-Threatening, Other)
  Sender: FDA-Public Use
  Company Number: US-MYLANLABS-2011S1016645

PATIENT
  Age: 19 Year
  Sex: Male

DRUGS (7)
  1. CLOZAPINE [Suspect]
     Indication: SCHIZOPHRENIA, PARANOID TYPE
     Route: 048
     Dates: end: 20110825
  2. LORAZEPAM [Concomitant]
  3. GEODON [Concomitant]
  4. GABAPENTIN [Concomitant]
  5. STRATTERA [Concomitant]
  6. RISPERDAL CONSTA [Concomitant]
     Route: 030
  7. SAPHRIS [Concomitant]

REACTIONS (3)
  - LEUKOPENIA [None]
  - AGRANULOCYTOSIS [None]
  - GRANULOCYTOPENIA [None]
